FAERS Safety Report 8597473-X (Version None)
Quarter: 2012Q3

REPORT INFORMATION
  Report Type: 
  Country: None (occurrence: None)
  Receive Date: 20120816
  Receipt Date: 20120814
  Transmission Date: 20120928
  Serious: Yes (Death, Other)
  Sender: FDA-Public Use
  Company Number: US-JNJFOC-20120712248

PATIENT

DRUGS (11)
  1. DOXORUBICIN HCL [Suspect]
     Indication: B-CELL LYMPHOMA
     Dosage: ADMINISTERED OVER 3 TO 5 MINUTES
     Route: 042
  2. DIPHENHYDRAMINE HYDROCHLORIDE [Concomitant]
     Indication: HYPERSENSITIVITY
     Route: 048
  3. ACETAMINOPHEN [Concomitant]
     Indication: HYPERSENSITIVITY
     Route: 048
  4. PREDNISONE TAB [Concomitant]
     Indication: NAUSEA
     Dosage: DAY 1-5
     Route: 048
  5. ONDANSETRON [Concomitant]
     Indication: NAUSEA
     Route: 042
  6. CYCLOPHOSPHAMIDE [Suspect]
     Indication: B-CELL LYMPHOMA
     Dosage: ON DAY 1
     Route: 042
  7. PREDNISONE TAB [Suspect]
     Indication: B-CELL LYMPHOMA
     Dosage: DAY 1-5
     Route: 048
  8. RITUXIMAB [Suspect]
     Indication: B-CELL LYMPHOMA
     Dosage: ON DAY 1
     Route: 065
  9. DOXORUBICIN HCL [Suspect]
     Dosage: ADMINISTERED OVER 3 TO 5 MINUTES
     Route: 042
  10. BORTEZOMIB [Suspect]
     Indication: B-CELL LYMPHOMA
     Dosage: ON DAY 1 AND REPEATED ON DAY 8 OF EACH CYCLE
     Route: 042
  11. VINCRISTINE [Suspect]
     Indication: B-CELL LYMPHOMA
     Dosage: DAY 1-5, CAPPED 1.5 MG
     Route: 048

REACTIONS (3)
  - BURKITT'S LYMPHOMA [None]
  - B-CELL LYMPHOMA [None]
  - DISEASE PROGRESSION [None]
